FAERS Safety Report 24695949 (Version 1)
Quarter: 2024Q4

REPORT INFORMATION
  Report Type: Spontaneous
  Country: JP (occurrence: JP)
  Receive Date: 20241204
  Receipt Date: 20241204
  Transmission Date: 20250115
  Serious: Yes (Other)
  Sender: Kenvue
  Company Number: JP-KENVUE-20241200272

PATIENT

DRUGS (1)
  1. MINOXIDIL [Suspect]
     Active Substance: MINOXIDIL
     Indication: Androgenetic alopecia
     Dosage: 1 MILLILITER, TWICE A DAY
     Route: 065

REACTIONS (2)
  - Empyema [Not Recovered/Not Resolved]
  - Headache [Not Recovered/Not Resolved]
